FAERS Safety Report 8067514-7 (Version None)
Quarter: 2012Q1

REPORT INFORMATION
  Report Type: 
  Country: None (occurrence: None)
  Receive Date: 20120124
  Receipt Date: 20120113
  Transmission Date: 20120608
  Serious: Yes (Disabling)
  Sender: FDA-Public Use
  Company Number: GXBR2012US000497

PATIENT
  Sex: Female
  Weight: 76.19 kg

DRUGS (5)
  1. ALBUTEROL [Concomitant]
     Indication: BRONCHITIS CHRONIC
     Dosage: UNK DF, PRN
  2. ALLEGRA [Concomitant]
     Indication: BRONCHITIS CHRONIC
     Dosage: 180 MG, QD
     Route: 048
  3. CEFDINIR [Suspect]
     Indication: BRONCHITIS
     Dosage: 300 MG, BID
     Route: 048
     Dates: start: 20110709, end: 20110716
  4. NEXIUM [Concomitant]
     Indication: OESOPHAGEAL ULCER
     Dosage: 40 MG, BID
     Route: 048
  5. WELCHOL [Concomitant]
     Indication: BLOOD CHOLESTEROL INCREASED
     Dosage: 3750 MG, QD

REACTIONS (8)
  - OROPHARYNGEAL PAIN [None]
  - ARTHRALGIA [None]
  - NAUSEA [None]
  - DYSPNOEA [None]
  - HYPERSENSITIVITY [None]
  - MYALGIA [None]
  - JOINT SWELLING [None]
  - ARTHRITIS [None]
